FAERS Safety Report 11776777 (Version 1)
Quarter: 2015Q4

REPORT INFORMATION
  Report Type: Spontaneous
  Country: US (occurrence: US)
  Receive Date: 20151125
  Receipt Date: 20151125
  Transmission Date: 20160304
  Serious: No
  Sender: FDA-Public Use
  Company Number: US-TEVA-521666USA

PATIENT
  Age: 4 Year
  Sex: Male

DRUGS (1)
  1. BUDESONIDE. [Suspect]
     Active Substance: BUDESONIDE
     Route: 065
     Dates: end: 20141105

REACTIONS (4)
  - Urticaria [Recovering/Resolving]
  - Rash [Recovering/Resolving]
  - Skin disorder [Recovering/Resolving]
  - Erythema [Recovering/Resolving]

NARRATIVE: CASE EVENT DATE: 201411
